FAERS Safety Report 22129471 (Version 2)
Quarter: 2023Q1

REPORT INFORMATION
  Report Type: Report from Study
  Country: US (occurrence: US)
  Receive Date: 20230323
  Receipt Date: 20230327
  Transmission Date: 20230417
  Serious: No
  Sender: FDA-Public Use
  Company Number: US-002147023-NVSC2023US063253

PATIENT
  Weight: 72.57 kg

DRUGS (4)
  1. DESONIDE [Suspect]
     Active Substance: DESONIDE
     Indication: Psoriasis
     Dosage: 0.05 %
     Route: 065
  2. CLOBETASOL [Suspect]
     Active Substance: CLOBETASOL
     Indication: Product used for unknown indication
     Dosage: UNK
     Route: 065
  3. FLUOCINOLONE [Suspect]
     Active Substance: FLUOCINOLONE
     Indication: Product used for unknown indication
     Dosage: UNK
     Route: 065
  4. OLUX [Suspect]
     Active Substance: CLOBETASOL PROPIONATE
     Indication: Psoriasis
     Dosage: UNK
     Route: 065

REACTIONS (12)
  - Rash pruritic [Unknown]
  - Rash [Unknown]
  - Skin haemorrhage [Unknown]
  - Seborrhoeic dermatitis [Unknown]
  - Skin plaque [Unknown]
  - Keratosis pilaris [Unknown]
  - Xerosis [Unknown]
  - Psoriasis [Unknown]
  - Skin exfoliation [Unknown]
  - Pruritus [Unknown]
  - Erythema [Unknown]
  - Treatment failure [Unknown]
